FAERS Safety Report 9403165 (Version 3)
Quarter: 2013Q3

REPORT INFORMATION
  Report Type: Spontaneous
  Country: CN (occurrence: CN)
  Receive Date: 20130716
  Receipt Date: 20130821
  Transmission Date: 20140515
  Serious: Yes (Other)
  Sender: FDA-Public Use
  Company Number: CN-GLAXOSMITHKLINE-B0907987A

PATIENT
  Age: 35 Year
  Sex: Male
  Weight: 61 kg

DRUGS (1)
  1. SEROXAT [Suspect]
     Indication: ANXIETY
     Dosage: 40MG PER DAY
     Route: 048

REACTIONS (4)
  - Urinary tract infection [Not Recovered/Not Resolved]
  - Haematuria [Not Recovered/Not Resolved]
  - Blood pressure increased [Not Recovered/Not Resolved]
  - Acne [Not Recovered/Not Resolved]
